FAERS Safety Report 25855979 (Version 1)
Quarter: 2025Q3

REPORT INFORMATION
  Report Type: Spontaneous
  Country: US (occurrence: US)
  Receive Date: 20250928
  Receipt Date: 20250928
  Transmission Date: 20251020
  Serious: No
  Sender: BIOGEN
  Company Number: US-BIOGENIDEC-2015BI000265

PATIENT
  Age: 50 Year
  Sex: Male

DRUGS (1)
  1. TYSABRI [Suspect]
     Active Substance: NATALIZUMAB
     Indication: Multiple sclerosis
     Route: 050
     Dates: start: 20140807

REACTIONS (8)
  - Arthropathy [Not Recovered/Not Resolved]
  - Ankle deformity [Unknown]
  - Gait disturbance [Recovered/Resolved]
  - Fall [Recovered/Resolved]
  - Joint swelling [Unknown]
  - Fatigue [Recovered/Resolved]
  - Memory impairment [Unknown]
  - Wrist fracture [Unknown]

NARRATIVE: CASE EVENT DATE: 20140807
